FAERS Safety Report 8358021-2 (Version None)
Quarter: 2012Q2

REPORT INFORMATION
  Report Type: 
  Country: None (occurrence: None)
  Receive Date: 20120514
  Receipt Date: 20120507
  Transmission Date: 20120825
  Serious: Yes (Other)
  Sender: FDA-Public Use
  Company Number: US-BAYER-2012-045111

PATIENT

DRUGS (3)
  1. MAGNEVIST [Suspect]
  2. OMNISCAN [Suspect]
  3. OPTIMARK [Suspect]

REACTIONS (5)
  - PAIN [None]
  - NEPHROGENIC SYSTEMIC FIBROSIS [None]
  - FIBROSIS [None]
  - EMOTIONAL DISTRESS [None]
  - INJURY [None]
